FAERS Safety Report 16072278 (Version 2)
Quarter: 2019Q2

REPORT INFORMATION
  Report Type: Spontaneous
  Country: US (occurrence: US)
  Receive Date: 20190314
  Receipt Date: 20190410
  Transmission Date: 20190711
  Serious: Yes (Hospitalization, Other)
  Sender: FDA-Public Use
  Company Number: US-AMAG PHARMACEUTICALS, INC.-AMAG201900738

PATIENT
  Age: 0 Day
  Sex: Male
  Weight: 1.47 kg

DRUGS (1)
  1. MAKENA [Suspect]
     Active Substance: HYDROXYPROGESTERONE CAPROATE
     Indication: FOETAL EXPOSURE DURING PREGNANCY
     Dosage: 250 MG/ML, WEEKLY
     Route: 064
     Dates: start: 20181003, end: 20190109

REACTIONS (2)
  - Premature baby [Recovered/Resolved]
  - Cardio-respiratory arrest neonatal [Recovered/Resolved]

NARRATIVE: CASE EVENT DATE: 20190116
